FAERS Safety Report 11487073 (Version 2)
Quarter: 2015Q3

REPORT INFORMATION
  Report Type: Spontaneous
  Country: DE (occurrence: DE)
  Receive Date: 20150909
  Receipt Date: 20150911
  Transmission Date: 20151125
  Serious: Yes (Other)
  Sender: FDA-Public Use
  Company Number: GXKR2015DE003968

PATIENT
  Sex: Female

DRUGS (1)
  1. NARATRIPTAN HEXAL [Suspect]
     Active Substance: NARATRIPTAN HYDROCHLORIDE
     Indication: MIGRAINE
     Dosage: 2.5 MG, BID
     Route: 048
     Dates: start: 2015

REACTIONS (3)
  - Drug abuse [Unknown]
  - Overdose [Unknown]
  - Medication overuse headache [Unknown]
